FAERS Safety Report 5590298-9 (Version None)
Quarter: 2008Q1

REPORT INFORMATION
  Report Type: 
  Country: None (occurrence: None)
  Receive Date: 20080114
  Receipt Date: 20080108
  Transmission Date: 20080703
  Serious: Yes (Death)
  Sender: FDA-Public Use
  Company Number: IT-SANOFI-SYNTHELABO-F01200800058

PATIENT
  Sex: Male

DRUGS (5)
  1. ALBUTEROL [Concomitant]
     Dosage: UNK
     Dates: start: 19940101
  2. INFLEUENZA VIRUS VACCINE POLYVALENT [Concomitant]
     Dosage: UNK
     Dates: start: 20071101
  3. SALMETEROL [Concomitant]
     Dosage: UNK
     Dates: start: 19940101
  4. BECLOMETHASONE DIPROPIONATE [Concomitant]
     Indication: CHRONIC OBSTRUCTIVE PULMONARY DISEASE
     Dosage: UNK
     Dates: start: 19940101
  5. ELIGARD [Suspect]
     Indication: PROSTATE CANCER
     Route: 058
     Dates: start: 20070920, end: 20070920

REACTIONS (1)
  - CARDIAC FAILURE [None]
